FAERS Safety Report 8044173-0 (Version None)
Quarter: 2012Q1

REPORT INFORMATION
  Report Type: 
  Country: None (occurrence: None)
  Receive Date: 20120113
  Receipt Date: 20120104
  Transmission Date: 20120608
  Serious: Yes (Hospitalization)
  Sender: FDA-Public Use
  Company Number: US-BRISTOL-MYERS SQUIBB COMPANY-16331092

PATIENT
  Sex: Male

DRUGS (4)
  1. LISINOPRIL [Concomitant]
  2. KOMBIGLYZE XR [Suspect]
     Dosage: 1DF=5MG/1000MG
     Dates: start: 20110601
  3. HYDROCHLOROTHIAZIDE [Concomitant]
  4. LIPITOR [Concomitant]

REACTIONS (1)
  - PANCREATITIS ACUTE [None]
